FAERS Safety Report 16420393 (Version 2)
Quarter: 2020Q3

REPORT INFORMATION
  Report Type: Spontaneous
  Country: IT (occurrence: IT)
  Receive Date: 20190612
  Receipt Date: 20191031
  Transmission Date: 20201104
  Serious: Yes (Other)
  Sender: FDA-Public Use
  Company Number: IT-ROCHE-2336218

PATIENT
  Age: 45 Year
  Sex: Male

DRUGS (1)
  1. ALECTINIB. [Suspect]
     Active Substance: ALECTINIB
     Indication: LUNG ADENOCARCINOMA
     Route: 048

REACTIONS (1)
  - Intravascular haemolysis [Recovered/Resolved]

NARRATIVE: CASE EVENT DATE: 20190322
